FAERS Safety Report 12460592 (Version 1)
Quarter: 2016Q2

REPORT INFORMATION
  Report Type: Report from Study
  Country: US (occurrence: US)
  Receive Date: 20160613
  Receipt Date: 20160613
  Transmission Date: 20160815
  Serious: No
  Sender: FDA-Public Use
  Company Number: US-MDT-ADR-2016-01065

PATIENT
  Age: 61 Year
  Sex: Female

DRUGS (3)
  1. DILAUDID [Suspect]
     Active Substance: HYDROMORPHONE HYDROCHLORIDE
     Dosage: 4.1549 MG/DAY
     Route: 037
  2. COMPOUNDED BACLOFEN [Suspect]
     Active Substance: BACLOFEN
     Dosage: 249.29 MCG/DAY
     Route: 037
  3. BUPIVACAINE. [Suspect]
     Active Substance: BUPIVACAINE
     Dosage: 8.310 MG/DAY
     Route: 037

REACTIONS (1)
  - Implant site extravasation [Not Recovered/Not Resolved]
